FAERS Safety Report 9060475 (Version 1)
Quarter: 2013Q1

REPORT INFORMATION
  Report Type: Report from Study
  Country: DE (occurrence: DE)
  Receive Date: 20130212
  Receipt Date: 20130212
  Transmission Date: 20140127
  Serious: Yes (Hospitalization, Other)
  Sender: FDA-Public Use
  Company Number: PHHO2011DE06072

PATIENT
  Age: 77 Year
  Sex: Male
  Weight: 86.5 kg

DRUGS (12)
  1. ASS SANDOZ [Suspect]
     Indication: PROPHYLAXIS
     Dosage: 100 MG, UNK
     Route: 048
     Dates: start: 19960409, end: 20110414
  2. BLINDED ENALAPRIL [Suspect]
     Indication: CARDIAC FAILURE CHRONIC
     Dosage: DOUBLE BLIND
     Dates: start: 20110119, end: 20110322
  3. BLINDED LCZ696 [Suspect]
     Indication: CARDIAC FAILURE CHRONIC
     Dosage: DOUBLE BLIND
     Dates: start: 20110119, end: 20110322
  4. BLINDED NO TREATMENT RECEIVED [Suspect]
     Indication: CARDIAC FAILURE CHRONIC
     Dosage: DOUBLE BLIND
     Dates: start: 20110119, end: 20110322
  5. SPIRONOLACTONE [Concomitant]
     Indication: CARDIAC FAILURE CHRONIC
     Dosage: 25 MG, UNK
     Route: 048
     Dates: start: 20000323, end: 20110330
  6. NEBIVOLOL [Concomitant]
     Indication: CARDIAC FAILURE CHRONIC
     Dosage: 5 MG, UNK
     Route: 048
     Dates: start: 20090317
  7. NEBIVOLOL [Concomitant]
     Dosage: 5 MG, BID
     Route: 048
     Dates: start: 20110404
  8. SIMVASTATIN [Concomitant]
     Indication: PROPHYLAXIS
     Dosage: 40 MG, UNK
     Route: 048
     Dates: start: 19960409, end: 20110330
  9. TORASEMIDE [Concomitant]
     Indication: CARDIAC FAILURE CONGESTIVE
     Dosage: 10 MG, UNK
     Route: 048
     Dates: start: 19990601
  10. TORASEMIDE [Concomitant]
     Dosage: 20 MG, UNK
     Route: 048
  11. ALLOPURINOL [Concomitant]
     Indication: HYPERURICAEMIA
     Dosage: 300 MG, UNK
     Route: 048
     Dates: start: 19930227, end: 20110330
  12. FALITHROM [Concomitant]
     Indication: PROPHYLAXIS
     Dosage: 3 MG, UNK
     Route: 048
     Dates: start: 19990517, end: 20110315

REACTIONS (10)
  - Colitis ischaemic [Recovered/Resolved]
  - Renal failure acute [Recovered/Resolved with Sequelae]
  - Sepsis [Recovered/Resolved]
  - Cardiac failure [Recovered/Resolved]
  - Adenocarcinoma [Recovered/Resolved]
  - Disease progression [Recovered/Resolved]
  - Concomitant disease progression [Recovered/Resolved]
  - Urinary tract infection [Recovered/Resolved with Sequelae]
  - Haematuria [Recovered/Resolved with Sequelae]
  - Lumbar vertebral fracture [Recovered/Resolved]
